FAERS Safety Report 6425791-X (Version None)
Quarter: 2009Q4

REPORT INFORMATION
  Report Type: 
  Country: None (occurrence: None)
  Receive Date: 20091103
  Receipt Date: 20090527
  Transmission Date: 20100525
  Serious: No
  Sender: FDA-Public Use
  Company Number: US-ABBOTT-09P-163-0576799-00

PATIENT
  Sex: Female
  Weight: 108.96 kg

DRUGS (3)
  1. BIAXIN [Suspect]
     Indication: SINUSITIS
     Route: 048
     Dates: start: 20090512, end: 20090516
  2. MICARDIS [Concomitant]
     Indication: HYPERTENSION
  3. TOPROL-XL [Concomitant]
     Indication: HYPERTENSION

REACTIONS (2)
  - AGEUSIA [None]
  - ANOSMIA [None]
